FAERS Safety Report 5128662-4 (Version None)
Quarter: 2006Q4

REPORT INFORMATION
  Report Type: 
  Country: None (occurrence: None)
  Receive Date: 20061011
  Receipt Date: 20060928
  Transmission Date: 20070319
  Serious: Yes (Other)
  Sender: FDA-Public Use
  Company Number: 229873

PATIENT
  Age: 84 Year
  Sex: Female
  Weight: 70.3 kg

DRUGS (8)
  1. AVASTIN [Suspect]
     Indication: MACULAR DEGENERATION
     Dosage: SINGLE, INTRAVITREAL
     Dates: start: 20060502
  2. MACUGEN (PEGAPTANIB) [Concomitant]
  3. AMBIEN [Concomitant]
  4. SYNTHROID [Concomitant]
  5. DARVOCET (ACETAMINOPHEN, PROPOXYPHENE NAPSYLATE) [Concomitant]
  6. DARVON [Concomitant]
  7. ZITHROMAX [Concomitant]
  8. LISINOPRIL [Concomitant]

REACTIONS (7)
  - CONTUSION [None]
  - ERYTHEMA [None]
  - EYE INJURY [None]
  - EYE SWELLING [None]
  - RASH ERYTHEMATOUS [None]
  - THERAPY NON-RESPONDER [None]
  - TYPE IV HYPERSENSITIVITY REACTION [None]
